FAERS Safety Report 17558524 (Version 1)
Quarter: 2020Q1

REPORT INFORMATION
  Report Type: Spontaneous
  Country: NO (occurrence: NO)
  Receive Date: 20200318
  Receipt Date: 20200318
  Transmission Date: 20200409
  Serious: Yes (Other)
  Sender: FDA-Public Use
  Company Number: NO-ANIPHARMA-2020-NO-000004

PATIENT
  Age: 57 Year
  Sex: Male

DRUGS (7)
  1. ALBYL-E [Suspect]
     Active Substance: ASPIRIN\MAGNESIUM OXIDE
     Dosage: UNKNOWN
     Route: 065
     Dates: start: 2015
  2. LIPITOR [Suspect]
     Active Substance: ATORVASTATIN CALCIUM
     Dosage: 80 MG DAILY
     Route: 065
     Dates: start: 2015
  3. LIPITOR [Suspect]
     Active Substance: ATORVASTATIN CALCIUM
     Dosage: 40 MG DAILY
  4. BRILIQUE [Suspect]
     Active Substance: TICAGRELOR
     Dosage: UNKNOWN
     Route: 048
     Dates: start: 2015
  5. ATACAND [Suspect]
     Active Substance: CANDESARTAN CILEXETIL
     Indication: PRODUCT USED FOR UNKNOWN INDICATION
     Dosage: 4 MG UNK
     Route: 048
     Dates: start: 2015
  6. MONOKET [Suspect]
     Active Substance: ISOSORBIDE MONONITRATE
     Dosage: UNKNOWN
     Route: 048
     Dates: start: 2015
  7. SELOZOK [Suspect]
     Active Substance: METOPROLOL SUCCINATE
     Dosage: 50 MG UNK
     Route: 050
     Dates: start: 2015

REACTIONS (3)
  - Chest pain [Unknown]
  - Blood pressure increased [Recovered/Resolved]
  - Iliac artery stenosis [Unknown]

NARRATIVE: CASE EVENT DATE: 201610
